FAERS Safety Report 9843708 (Version 2)
Quarter: 2014Q2

REPORT INFORMATION
  Report Type: Spontaneous
  Country: US (occurrence: US)
  Receive Date: 20140125
  Receipt Date: 20140624
  Transmission Date: 20141212
  Serious: Yes (Hospitalization)
  Sender: FDA-Public Use
  Company Number: US-UCBSA-109447

PATIENT
  Age: 34 Year
  Sex: Female
  Weight: 154.2 kg

DRUGS (1)
  1. KEPPRA XR [Suspect]
     Indication: CONVULSION
     Dosage: UNK, 2X/DAY (BID)
     Dates: start: 201306

REACTIONS (2)
  - Convulsion [Unknown]
  - Inappropriate schedule of drug administration [Unknown]
